FAERS Safety Report 20837182 (Version 2)
Quarter: 2022Q2

REPORT INFORMATION
  Report Type: Spontaneous
  Country: GB (occurrence: GB)
  Receive Date: 20220517
  Receipt Date: 20220527
  Transmission Date: 20220721
  Serious: Yes (Death, Other)
  Sender: FDA-Public Use
  Company Number: GB-SUN PHARMACEUTICAL INDUSTRIES LTD-2022RR-337038

PATIENT
  Age: 45 Year
  Sex: Female

DRUGS (1)
  1. IMATINIB [Suspect]
     Active Substance: IMATINIB
     Indication: Chordoma
     Dosage: UNK
     Route: 065
     Dates: start: 201905, end: 202008

REACTIONS (2)
  - Therapeutic product effect incomplete [Unknown]
  - Disease progression [Fatal]
